FAERS Safety Report 12483715 (Version 5)
Quarter: 2019Q2

REPORT INFORMATION
  Report Type: Report from Study
  Country: US (occurrence: US)
  Receive Date: 20160621
  Receipt Date: 20190424
  Transmission Date: 20190711
  Serious: Yes (Other)
  Sender: FDA-Public Use
  Company Number: PHHY2016US082570

PATIENT
  Age: 50 Year
  Sex: Female

DRUGS (1)
  1. GILENYA [Suspect]
     Active Substance: FINGOLIMOD HYDROCHLORIDE
     Indication: MULTIPLE SCLEROSIS
     Dosage: UNK, QD
     Route: 048

REACTIONS (5)
  - Epistaxis [Unknown]
  - Lymphocyte count decreased [Unknown]
  - Dermatitis [Unknown]
  - Psoriasis [Unknown]
  - Hypertension [Unknown]

NARRATIVE: CASE EVENT DATE: 20151005
